FAERS Safety Report 9106332 (Version 1)
Quarter: 2013Q1

REPORT INFORMATION
  Report Type: Spontaneous
  Country: GB (occurrence: GB)
  Receive Date: 20130220
  Receipt Date: 20130220
  Transmission Date: 20140127
  Serious: Yes (Death, Hospitalization)
  Sender: FDA-Public Use
  Company Number: GB-ELI_LILLY_AND_COMPANY-GB201302003948

PATIENT
  Age: 60 Year
  Sex: Male
  Weight: 77 kg

DRUGS (30)
  1. GEMCITABINE HYDROCHLORIDE [Suspect]
     Indication: NON-SMALL CELL LUNG CANCER
     Dosage: 2500 MG, UNK
     Route: 042
     Dates: start: 20120806, end: 20121015
  2. CARBOPLATIN [Concomitant]
     Indication: NON-SMALL CELL LUNG CANCER
     Dosage: 570 MG, UNK
     Route: 042
     Dates: start: 20120806, end: 20121005
  3. ACYCLOVIR [Concomitant]
     Dosage: 700 MG, TID
     Route: 042
  4. AMIODARONE [Concomitant]
     Dosage: 300 MG, UNK
  5. CARBOCISTEINE [Concomitant]
     Dosage: 750 MG, TID
  6. CASPOFUNGIN [Concomitant]
     Dosage: 50 MG, QD
  7. CLARITHROMYCIN [Concomitant]
     Dosage: 500 MG, BID
     Route: 042
  8. AMOXICILLIN\CLAVULANATE POTASSIUM [Concomitant]
     Dosage: 625 MG, TID
     Dates: start: 20130110
  9. CO-CODAMOL [Concomitant]
     Dosage: 2 DF, QID
  10. CO-TRIMOXAZOLE [Concomitant]
     Dosage: 2.4 MG, QID
     Route: 042
     Dates: start: 20130117
  11. DALTEPARIN [Concomitant]
     Dosage: 5000 IU, QD
     Route: 058
  12. DIAMORPHINE [Concomitant]
  13. EPOPROSTENOL [Concomitant]
     Dosage: 40 MG, QD
     Route: 042
  14. ESOMEPRAZOLE [Concomitant]
  15. FENTANYL [Concomitant]
  16. FUROSEMIDE [Concomitant]
     Dosage: 40 MG, UNK
     Route: 042
  17. GAVISCON                           /00237601/ [Concomitant]
  18. HYDROCORTISONE [Concomitant]
     Dosage: 200 MG, UNK
     Route: 042
  19. LANSOPRAZOLE [Concomitant]
     Dosage: 15 MG, QD
  20. MEROPENEM [Concomitant]
     Dosage: 1 G, BID
     Route: 042
  21. MIDAZOLAM [Concomitant]
  22. MORPHINE SULFATE [Concomitant]
     Dosage: 10 MG, UNK
  23. NAPROXEN [Concomitant]
     Dosage: 250 MG, UNK
  24. NORADRENALINE [Concomitant]
  25. NORMAL SALINE [Concomitant]
  26. NYSTATIN [Concomitant]
     Dosage: 1 ML, QID
  27. PROPOFOL [Concomitant]
     Dosage: 1 ML, QID
  28. SALBUTAMOL [Concomitant]
     Dosage: 100 UG, UNK
     Route: 055
  29. TAZOCIN [Concomitant]
     Dosage: 4.5 G, TID
     Route: 042
  30. TIOTROPIUM [Concomitant]
     Dosage: 18 UG, QD
     Route: 055

REACTIONS (9)
  - Pulmonary fibrosis [Fatal]
  - Renal failure acute [Not Recovered/Not Resolved]
  - Lower respiratory tract infection [Not Recovered/Not Resolved]
  - Haemoptysis [Not Recovered/Not Resolved]
  - Pneumonia [Not Recovered/Not Resolved]
  - Dyspnoea exertional [Not Recovered/Not Resolved]
  - Dyspnoea [Not Recovered/Not Resolved]
  - Productive cough [Not Recovered/Not Resolved]
  - Thrombocytopenia [Not Recovered/Not Resolved]
